FAERS Safety Report 8554700-2 (Version None)
Quarter: 2012Q3

REPORT INFORMATION
  Report Type: 
  Country: None (occurrence: None)
  Receive Date: 20120725
  Receipt Date: 20120725
  Transmission Date: 20120928
  Serious: Yes (Hospitalization)
  Sender: FDA-Public Use
  Company Number: None

PATIENT
  Age: 76 Year
  Sex: Female
  Weight: 73.4 kg

DRUGS (1)
  1. LORAZEPAM [Suspect]
     Indication: ANXIETY
     Dosage: 0.5MG PRN PO
     Route: 048
     Dates: start: 20120401, end: 20120713

REACTIONS (6)
  - MENTAL STATUS CHANGES [None]
  - CONFUSIONAL STATE [None]
  - FEELING DRUNK [None]
  - BACTERAEMIA [None]
  - SEDATION [None]
  - SOMNOLENCE [None]
